FAERS Safety Report 5298154-0 (Version None)
Quarter: 2007Q2

REPORT INFORMATION
  Report Type: 
  Country: None (occurrence: None)
  Receive Date: 20070416
  Receipt Date: 20070411
  Transmission Date: 20071010
  Serious: Yes (Life-Threatening, Hospitalization)
  Sender: FDA-Public Use
  Company Number: PHBS2006BR05423

PATIENT
  Age: 4 Year
  Sex: Female
  Weight: 15 kg

DRUGS (3)
  1. TEGRETOL [Suspect]
     Indication: EPILEPSY
     Dosage: UNK, Q8H
     Route: 048
     Dates: start: 20030901
  2. OMEPRAZOLE [Concomitant]
     Indication: GASTRITIS
     Dosage: 20 MG, QD
     Route: 065
  3. MOTILIUM [Concomitant]
     Dosage: UNK, Q8H
     Route: 065

REACTIONS (7)
  - ACCIDENTAL EXPOSURE [None]
  - ANTICONVULSANT DRUG LEVEL BELOW THERAPEUTIC [None]
  - COMA [None]
  - EPILEPSY [None]
  - GLASGOW COMA SCALE ABNORMAL [None]
  - SOMNOLENCE [None]
  - SYNCOPE [None]
